FAERS Safety Report 19281530 (Version 2)
Quarter: 2023Q1

REPORT INFORMATION
  Report Type: Spontaneous
  Country: US (occurrence: US)
  Receive Date: 20210521
  Receipt Date: 20230327
  Transmission Date: 20230417
  Serious: Yes (Hospitalization, Other)
  Sender: FDA-Public Use
  Company Number: US-AMGEN-USASP2021076305

PATIENT
  Age: 9 Month
  Sex: Male

DRUGS (4)
  1. BLINCYTO [Suspect]
     Active Substance: BLINATUMOMAB
     Indication: B precursor type acute leukaemia
     Dosage: UNK
     Route: 065
  2. INOTUZUMAB OZOGAMICIN [Concomitant]
     Active Substance: INOTUZUMAB OZOGAMICIN
     Indication: B precursor type acute leukaemia
     Dosage: UNK UNK, QWK
     Route: 065
  3. INOTUZUMAB OZOGAMICIN [Concomitant]
     Active Substance: INOTUZUMAB OZOGAMICIN
     Dosage: (BI-WEEKLY)
     Route: 065
  4. INOTUZUMAB OZOGAMICIN [Concomitant]
     Active Substance: INOTUZUMAB OZOGAMICIN
     Dosage: UNK UNK, QMO
     Route: 065

REACTIONS (14)
  - Pancytopenia [Recovering/Resolving]
  - Mucocutaneous haemorrhage [Recovered/Resolved]
  - Acute lymphocytic leukaemia recurrent [Recovered/Resolved]
  - Leukaemic infiltration extramedullary [Unknown]
  - Thrombocytopenia [Unknown]
  - Cellulitis [Unknown]
  - Pseudomonas infection [Unknown]
  - Contusion [Recovered/Resolved]
  - Activated partial thromboplastin time prolonged [Unknown]
  - Treatment failure [Unknown]
  - Drug ineffective [Unknown]
  - Gamma-glutamyltransferase increased [Unknown]
  - Alanine aminotransferase increased [Unknown]
  - Aspartate aminotransferase increased [Unknown]
